FAERS Safety Report 8887752 (Version 1)
Quarter: 2012Q4

REPORT INFORMATION
  Report Type: 
  Country: US (occurrence: US)
  Receive Date: 20121106
  Receipt Date: 20121106
  Transmission Date: 20130627
  Serious: No
  Sender: FDA-Public Use
  Company Number: US-009507513-1210USA011249

PATIENT
  Sex: Female

DRUGS (2)
  1. DULERA [Suspect]
     Indication: ASTHMA
     Dosage: 2 puffs in morning and 2 puffs at night
     Route: 055
     Dates: end: 20121011
  2. ASMANEX TWISTHALER [Concomitant]

REACTIONS (1)
  - Chest pain [Recovered/Resolved]
